FAERS Safety Report 10252384 (Version 1)
Quarter: 2014Q2

REPORT INFORMATION
  Report Type: Spontaneous
  Country: US (occurrence: None)
  Receive Date: 20140620
  Receipt Date: 20140620
  Transmission Date: 20141212
  Serious: Yes (Life-Threatening, Hospitalization)
  Sender: FDA-Public Use
  Company Number: None

PATIENT
  Age: 73 Year
  Sex: Male
  Weight: 71.8 kg

DRUGS (3)
  1. SERTRALINE [Suspect]
     Indication: DEPRESSION
     Route: 048
     Dates: start: 20140306, end: 20140404
  2. NORTRIPTYLINE [Suspect]
     Indication: HEADACHE
     Route: 048
     Dates: start: 20110720, end: 20140404
  3. NORTRIPTYLINE [Suspect]
     Route: 048
     Dates: start: 20110720, end: 20140404

REACTIONS (11)
  - Back pain [None]
  - Gait disturbance [None]
  - Serotonin syndrome [None]
  - Neuroleptic malignant syndrome [None]
  - Cholestasis [None]
  - International normalised ratio increased [None]
  - Hypotension [None]
  - Parkinsonism [None]
  - Dyskinesia [None]
  - Atrial fibrillation [None]
  - Ventricular tachycardia [None]
